FAERS Safety Report 7707685-2 (Version None)
Quarter: 2011Q3

REPORT INFORMATION
  Report Type: 
  Country: None (occurrence: None)
  Receive Date: 20110824
  Receipt Date: 20110818
  Transmission Date: 20111222
  Serious: Yes (Other)
  Sender: FDA-Public Use
  Company Number: US-BAYER-201014226NA

PATIENT
  Age: 32 Year
  Sex: Female
  Weight: 57 kg

DRUGS (3)
  1. SERTRALINE HYDROCHLORIDE [Concomitant]
     Indication: ANXIETY
     Route: 048
     Dates: start: 20070901, end: 20071228
  2. SERTRALINE HYDROCHLORIDE [Concomitant]
     Indication: DEPRESSION
  3. YAZ [Suspect]
     Indication: CONTRACEPTION
     Route: 048
     Dates: start: 20070901, end: 20080206

REACTIONS (10)
  - VISION BLURRED [None]
  - KERATITIS [None]
  - DRY EYE [None]
  - PRURITUS [None]
  - OCULAR HYPERAEMIA [None]
  - HYPERTENSION [None]
  - EYE IRRITATION [None]
  - HEADACHE [None]
  - CONJUNCTIVITIS ALLERGIC [None]
  - MYOPIA [None]
